FAERS Safety Report 7480472-9 (Version None)
Quarter: 2011Q2

REPORT INFORMATION
  Report Type: 
  Country: None (occurrence: None)
  Receive Date: 20110516
  Receipt Date: 20110512
  Transmission Date: 20111010
  Serious: Yes (Life-Threatening, Disabling, Other)
  Sender: FDA-Public Use
  Company Number: PHFR2010GB04373

PATIENT
  Sex: Male

DRUGS (13)
  1. CLOZARIL [Suspect]
     Dosage: 350 MG, DAILY
     Route: 048
     Dates: start: 20090910
  2. ALBUTEROL SULFATE AUTOHALER [Concomitant]
  3. OXYGEN [Concomitant]
     Dosage: UNK
  4. DOMPERIDONE [Concomitant]
     Dosage: UNK
  5. OMEPRAZOLE [Concomitant]
     Dosage: 40 MG, UNK
     Route: 048
  6. ACETAMINOPHEN [Concomitant]
     Dosage: 1 G, QID
     Route: 048
  7. GAVISCON [Concomitant]
     Dosage: UNK
  8. PIRENZEPINE [Concomitant]
     Indication: SALIVARY HYPERSECRETION
     Dosage: 50 MG, TID
     Route: 048
  9. RAMIPRIL [Concomitant]
     Indication: HYPERTENSION
     Dosage: 2 TO 5 MG DAILY
     Route: 048
  10. SENNA-MINT WAF [Concomitant]
     Dosage: 2 DF, QD
  11. FOLIC ACID [Concomitant]
     Dosage: 5 MG DAILY
     Route: 048
  12. FERROUS SULFATE TAB [Concomitant]
     Dosage: 200 MG, BID
     Route: 048
  13. SIMPLE LINCTUS [Concomitant]
     Dosage: UNK

REACTIONS (11)
  - OXYGEN SATURATION DECREASED [None]
  - LOWER RESPIRATORY TRACT INFECTION [None]
  - SOMNOLENCE [None]
  - CHRONIC RESPIRATORY FAILURE [None]
  - HYPOXIA [None]
  - OBESITY [None]
  - CYANOSIS [None]
  - HYPERTENSION [None]
  - SLEEP APNOEA SYNDROME [None]
  - OEDEMA PERIPHERAL [None]
  - PSYCHOTIC DISORDER [None]
